FAERS Safety Report 13911146 (Version 1)
Quarter: 2017Q3

REPORT INFORMATION
  Report Type: Report from Study
  Country: CN (occurrence: CN)
  Receive Date: 20170828
  Receipt Date: 20170828
  Transmission Date: 20171127
  Serious: Yes (Hospitalization)
  Sender: FDA-Public Use
  Company Number: CN-ASTELLAS-2017US021261

PATIENT
  Sex: Female

DRUGS (1)
  1. ERLOTINIB [Suspect]
     Active Substance: ERLOTINIB
     Indication: NON-SMALL CELL LUNG CANCER
     Route: 048
     Dates: start: 20150313

REACTIONS (7)
  - Cerebral infarction [Unknown]
  - Nasopharyngitis [Unknown]
  - Gait disturbance [Unknown]
  - Movement disorder [Unknown]
  - Fall [Unknown]
  - Joint range of motion decreased [Unknown]
  - Cerebrovascular accident [Not Recovered/Not Resolved]
